FAERS Safety Report 6216104-7 (Version None)
Quarter: 2009Q2

REPORT INFORMATION
  Report Type: 
  Country: None (occurrence: None)
  Receive Date: 20090605
  Receipt Date: 20090527
  Transmission Date: 20091009
  Serious: Yes (Death, Life-Threatening, Hospitalization, Other)
  Sender: FDA-Public Use
  Company Number: JP-BAYER-200811455BYL

PATIENT
  Age: 50 Year
  Sex: Female
  Weight: 42 kg

DRUGS (3)
  1. NEXAVAR [Suspect]
     Indication: RENAL CELL CARCINOMA STAGE IV
     Dosage: UNIT DOSE: 200 MG
     Route: 048
     Dates: start: 20080602, end: 20080627
  2. NEXAVAR [Suspect]
     Dosage: UNIT DOSE: 200 MG
     Route: 048
     Dates: start: 20080628, end: 20080703
  3. NEXAVAR [Suspect]
     Dosage: UNIT DOSE: 200 MG
     Route: 048
     Dates: start: 20080801, end: 20080922

REACTIONS (13)
  - ANAEMIA [None]
  - CANCER PAIN [None]
  - CONSTIPATION [None]
  - DELIRIUM [None]
  - GASTRITIS [None]
  - HAEMATURIA [None]
  - INSOMNIA [None]
  - INTERSTITIAL LUNG DISEASE [None]
  - METASTASES TO CENTRAL NERVOUS SYSTEM [None]
  - OEDEMA [None]
  - PANCREATITIS [None]
  - RENAL CELL CARCINOMA STAGE IV [None]
  - RESPIRATORY FAILURE [None]
